FAERS Safety Report 4805442-8 (Version None)
Quarter: 2005Q4

REPORT INFORMATION
  Report Type: 
  Country: None (occurrence: None)
  Receive Date: 20051018
  Receipt Date: 20051005
  Transmission Date: 20060501
  Serious: Yes (Other)
  Sender: FDA-Public Use
  Company Number: 2005108345

PATIENT
  Age: 70 Year
  Sex: Female

DRUGS (4)
  1. XALATAN [Suspect]
     Indication: INTRAOCULAR PRESSURE INCREASED
     Dosage: INTRAOCULAR
     Route: 031
     Dates: start: 20010220
  2. BETOPTIC [Concomitant]
  3. DETANTOL (BUNAZOSIN HYDROCHLORIDE [Concomitant]
  4. HYALEIN (HYALURONATE SODIUM) [Concomitant]

REACTIONS (2)
  - HEADACHE [None]
  - MUSCULOSKELETAL STIFFNESS [None]
